FAERS Safety Report 21906020 (Version 1)
Quarter: 2023Q1

REPORT INFORMATION
  Report Type: Spontaneous
  Country: CA (occurrence: CA)
  Receive Date: 20230124
  Receipt Date: 20230124
  Transmission Date: 20230418
  Serious: Yes (Other)
  Sender: FDA-Public Use
  Company Number: CA-CELLTRION INC.-2023CA001387

PATIENT

DRUGS (1)
  1. TRUXIMA [Suspect]
     Active Substance: RITUXIMAB-ABBS
     Indication: Eosinophilic fasciitis
     Dosage: 375 MG/M2, 4 X 500 MG VIALS = 2000 MG (RETREATMENT)

REACTIONS (2)
  - Eosinophilic fasciitis [Unknown]
  - Off label use [Unknown]
